FAERS Safety Report 25913357 (Version 2)
Quarter: 2025Q4

REPORT INFORMATION
  Report Type: Spontaneous
  Country: SA (occurrence: SA)
  Receive Date: 20251013
  Receipt Date: 20251024
  Transmission Date: 20260117
  Serious: Yes (Death, Other)
  Sender: NOVARTIS
  Company Number: SA-002147023-NVSC2025SA156715

PATIENT
  Age: 13 Year
  Sex: Male

DRUGS (1)
  1. KYMRIAH [Suspect]
     Active Substance: TISAGENLECLEUCEL
     Indication: Acute lymphocytic leukaemia recurrent
     Dosage: 4.6 E6, CELL /KG ONCE/SINGLE (INFUSION)
     Route: 042
     Dates: start: 20250824, end: 20250824

REACTIONS (6)
  - Cytokine release syndrome [Fatal]
  - Immune effector cell-associated neurotoxicity syndrome [Fatal]
  - Brain oedema [Fatal]
  - Brain herniation [Fatal]
  - Cardio-respiratory arrest [Fatal]
  - Brain death [Fatal]

NARRATIVE: CASE EVENT DATE: 20250824
